FAERS Safety Report 22287981 (Version 1)
Quarter: 2023Q2

REPORT INFORMATION
  Report Type: Spontaneous
  Country: CA (occurrence: CA)
  Receive Date: 20230505
  Receipt Date: 20230505
  Transmission Date: 20230722
  Serious: Yes (Other)
  Sender: FDA-Public Use
  Company Number: CA-MYLANLABS-2023M1044869

PATIENT
  Sex: Female
  Weight: 66 kg

DRUGS (1)
  1. LEVONORGESTREL [Suspect]
     Active Substance: LEVONORGESTREL
     Indication: Post coital contraception
     Dosage: 1.5 MILLIGRAM
     Route: 065
     Dates: start: 20230317

REACTIONS (2)
  - Pregnancy on oral contraceptive [Unknown]
  - Drug ineffective [Unknown]
